FAERS Safety Report 6119765 (Version 26)
Quarter: 2012Q4

REPORT INFORMATION
  Report Type: 
  Country: US (occurrence: US)
  Receive Date: 20060831
  Receipt Date: 20121019
  Transmission Date: 20130627
  Serious: Yes (Death, Hospitalization, Other)
  Sender: FDA-Public Use
  Company Number: PHEH2006US10894

PATIENT
  Age: 60 None
  Sex: Female
  Weight: 111.11 kg

DRUGS (38)
  1. ZOMETA [Suspect]
     Indication: BREAST CANCER METASTATIC
     Dosage: 4 mg, QMO
     Dates: start: 200506, end: 20060628
  2. AREDIA [Suspect]
     Route: 042
  3. FEMARA [Concomitant]
     Dosage: 2.5 mg
     Route: 048
     Dates: start: 200506, end: 200601
  4. PROVENTIL [Concomitant]
     Dosage: 2 DF, PRN
  5. PAXIL [Concomitant]
     Dosage: 40 mg, QD
     Route: 048
  6. DARVOCET-N [Concomitant]
  7. AROMASIN [Concomitant]
  8. CYTOXAN [Concomitant]
  9. METHOTREXATE [Concomitant]
  10. TESTOSTERONE [Concomitant]
  11. MEGACE [Concomitant]
  12. ADVAIR DISKUS [Concomitant]
  13. COLACE [Concomitant]
  14. CYMBALTA [Concomitant]
  15. DUONEB [Concomitant]
  16. KLONOPIN [Concomitant]
  17. NORCO [Concomitant]
  18. TYLENOL [Concomitant]
  19. OXYCODONE [Concomitant]
  20. PROVIGIL [Concomitant]
  21. VENTOLIN                           /00139501/ [Concomitant]
  22. TORADOL [Concomitant]
  23. COMPAZINE [Concomitant]
  24. ATENOLOL [Concomitant]
  25. LORAZEPAM [Concomitant]
  26. ZYRTEC [Concomitant]
  27. ASPIRIN ^BAYER^ [Concomitant]
  28. OXYGEN [Concomitant]
  29. TAXOTERE [Concomitant]
  30. PEPCID [Concomitant]
  31. K-DUR [Concomitant]
  32. OXYCONTIN [Concomitant]
  33. DIOVAN [Concomitant]
  34. NASONEX [Concomitant]
  35. OTHER ANTINEOPLASTIC AGENTS [Concomitant]
  36. VITAMIN D [Concomitant]
  37. MAGNESIUM SUPPLEMENTS [Concomitant]
  38. DECADRON                                /CAN/ [Concomitant]
     Dosage: 10 mg, UNK
     Route: 042

REACTIONS (100)
  - Death [Fatal]
  - Erythema [Unknown]
  - Joint swelling [Unknown]
  - Pneumonia [Unknown]
  - Hypoxia [Unknown]
  - Chronic obstructive pulmonary disease [Not Recovered/Not Resolved]
  - Pneumonitis [Recovered/Resolved]
  - Chest pain [Unknown]
  - Dyspnoea [Unknown]
  - Renal atrophy [Unknown]
  - Nephrolithiasis [Unknown]
  - Osteonecrosis of jaw [Unknown]
  - Resorption bone increased [Unknown]
  - Injury [Unknown]
  - Pain [Unknown]
  - Anxiety [Unknown]
  - Pathological fracture [Unknown]
  - Malignant neoplasm progression [Unknown]
  - Bone scan abnormal [Unknown]
  - Metastases to bone [Unknown]
  - Breast necrosis [Unknown]
  - Musculoskeletal chest pain [Unknown]
  - Osteolysis [Unknown]
  - Oedema peripheral [Unknown]
  - Asthma [Unknown]
  - Hypertension [Unknown]
  - Hypertonic bladder [Unknown]
  - Rectocele [Unknown]
  - Bone lesion [Unknown]
  - Diverticulum intestinal [Unknown]
  - Personality disorder [Unknown]
  - Confusional state [Unknown]
  - Sleep apnoea syndrome [Unknown]
  - Osteoarthritis [Unknown]
  - Arthralgia [Unknown]
  - Asthenia [Unknown]
  - Gait disturbance [Unknown]
  - Bipolar I disorder [Unknown]
  - Kyphosis [Unknown]
  - Compression fracture [Unknown]
  - Failure to thrive [Unknown]
  - Suicidal ideation [Unknown]
  - Drug abuse [Unknown]
  - Vaginal haemorrhage [Unknown]
  - Ligament sprain [Unknown]
  - Upper respiratory tract infection [Unknown]
  - Wheezing [Unknown]
  - Pulmonary congestion [Unknown]
  - Total lung capacity decreased [Unknown]
  - Scoliosis [Unknown]
  - Metastatic neoplasm [Unknown]
  - Metastatic pain [Unknown]
  - Pulmonary mass [Unknown]
  - Carbohydrate antigen 27.29 increased [Unknown]
  - Bone disorder [Unknown]
  - Tooth abscess [Unknown]
  - Impaired healing [Unknown]
  - Cardiac failure congestive [Unknown]
  - Cardiomegaly [Unknown]
  - Gout [Unknown]
  - Neurodermatitis [Unknown]
  - Fluid retention [Unknown]
  - Atelectasis [Unknown]
  - Patellofemoral pain syndrome [Unknown]
  - Osteoporosis [Unknown]
  - Osteosclerosis [Unknown]
  - Gliosis [Unknown]
  - Tendon disorder [Unknown]
  - Ischaemic cerebral infarction [Unknown]
  - Hepatomegaly [Unknown]
  - Amnesia [Unknown]
  - Rib fracture [Unknown]
  - Cerebrovascular disorder [Unknown]
  - Spleen disorder [Unknown]
  - Metastatic renal cell carcinoma [Unknown]
  - Transient ischaemic attack [Unknown]
  - Throat cancer [Unknown]
  - Neuropathy peripheral [Unknown]
  - Sinus tachycardia [Unknown]
  - Atrial fibrillation [Unknown]
  - Pleural effusion [Unknown]
  - Syncope [Unknown]
  - Laceration [Unknown]
  - Arteriosclerosis [Unknown]
  - Spinal osteoarthritis [Unknown]
  - Pelvic fracture [Unknown]
  - Breast oedema [Unknown]
  - Forearm fracture [Recovering/Resolving]
  - Fractured coccyx [Unknown]
  - Contusion [Unknown]
  - Resting tremor [Unknown]
  - Osteopenia [Unknown]
  - Pubis fracture [Unknown]
  - Dysphagia [Unknown]
  - Atrophy [Unknown]
  - Cerebral small vessel ischaemic disease [Unknown]
  - Rib deformity [Unknown]
  - Muscle atrophy [Unknown]
  - Hyperkeratosis [Unknown]
  - Onychomycosis [Unknown]
